FAERS Safety Report 11722581 (Version 1)
Quarter: 2015Q4

REPORT INFORMATION
  Report Type: Report from Study
  Country: AU (occurrence: AU)
  Receive Date: 20151111
  Receipt Date: 20151111
  Transmission Date: 20160304
  Serious: Yes (Death, Other)
  Sender: FDA-Public Use
  Company Number: AU-CELGENE-AUS-2015106998

PATIENT

DRUGS (3)
  1. REVLIMID [Suspect]
     Active Substance: LENALIDOMIDE
     Route: 048
  2. PREDNISONE. [Concomitant]
     Active Substance: PREDNISONE
     Indication: PLASMA CELL MYELOMA
     Route: 065
  3. REVLIMID [Suspect]
     Active Substance: LENALIDOMIDE
     Indication: PLASMA CELL MYELOMA
     Route: 048

REACTIONS (15)
  - Lower respiratory tract infection [Unknown]
  - Diarrhoea [Unknown]
  - Thrombocytopenia [Unknown]
  - Upper respiratory tract infection [Unknown]
  - Fatigue [Unknown]
  - Insomnia [Unknown]
  - Muscle spasms [Unknown]
  - Plasma cell myeloma [Fatal]
  - Bone marrow failure [Unknown]
  - Neutropenia [Unknown]
  - Anaemia [Unknown]
  - Plasma cell myeloma recurrent [Unknown]
  - Varicella zoster virus infection [Unknown]
  - Hyperglycaemia [Unknown]
  - Neuropathy peripheral [Unknown]
